FAERS Safety Report 5548020-8 (Version None)
Quarter: 2007Q4

REPORT INFORMATION
  Report Type: 
  Country: None (occurrence: None)
  Receive Date: 20071206
  Receipt Date: 20071123
  Transmission Date: 20080405
  Serious: Yes (Hospitalization)
  Sender: FDA-Public Use
  Company Number: DSA_30956_2007

PATIENT
  Sex: Male

DRUGS (5)
  1. MONO-TILDEM SLOW RELEASE - DILTIAZEM HYDROCHLORIDE [Suspect]
     Indication: DRUG USE FOR UNKNOWN INDICATION
     Dosage: 300 MG QD ORAL
     Route: 048
  2. ALDALIX (ALDALIX - SPIRONOLACTONE/ FUROSEMIDE) [Suspect]
     Indication: DRUG USE FOR UNKNOWN INDICATION
     Dosage: 1 DF QD 50 MG SPIRONOLACTONE/ 20MG FUROSEMIDE ORAL)
     Route: 048
     Dates: end: 20071103
  3. OLMESARTAN MEDOXOMIL [Suspect]
     Indication: HYPERTENSION
     Dosage: 20 MG QD ORAL
     Route: 048
  4. TAHOR (TAHOR - ATORVASTATIN CALCIUM) [Suspect]
     Indication: DRUG USE FOR UNKNOWN INDICATION
     Dosage: DF ORAL
     Route: 048
  5. HYPERIUM /00939801/ (HYPERIUM - RILMENIDINE) [Suspect]
     Indication: HYPERTENSION
     Dosage: 1 MG QD ORAL
     Route: 048

REACTIONS (6)
  - ASTHENIA [None]
  - BLOOD CREATININE INCREASED [None]
  - BRADYCARDIA [None]
  - DEHYDRATION [None]
  - DIARRHOEA [None]
  - HYPERKALAEMIA [None]
